FAERS Safety Report 7745732-2 (Version None)
Quarter: 2011Q3

REPORT INFORMATION
  Report Type: 
  Country: None (occurrence: None)
  Receive Date: 20110913
  Receipt Date: 20110817
  Transmission Date: 20111222
  Serious: No
  Sender: FDA-Public Use
  Company Number: US-BAYER-2011-076156

PATIENT

DRUGS (3)
  1. NIACIN [Concomitant]
     Dosage: DAILY DOSE 2 DF
     Route: 048
  2. ALEVE (CAPLET) [Suspect]
     Dosage: DAILY DOSE 2640 MG
     Route: 048
  3. L-LYSINE [Concomitant]
     Dosage: DAILY DOSE 3 DF
     Route: 048

REACTIONS (1)
  - NO ADVERSE EVENT [None]
